FAERS Safety Report 4322598-4 (Version None)
Quarter: 2004Q1

REPORT INFORMATION
  Report Type: 
  Country: None (occurrence: None)
  Receive Date: 20040324
  Receipt Date: 20040311
  Transmission Date: 20041129
  Serious: Yes (Life-Threatening, Hospitalization)
  Sender: FDA-Public Use
  Company Number: PHEH2004US02941

PATIENT
  Age: 51 Year
  Sex: Male
  Weight: 88 kg

DRUGS (6)
  1. CLOZARIL [Suspect]
     Indication: SCHIZOPHRENIA
     Dosage: 400 MG/DAY
     Route: 048
     Dates: start: 20021001, end: 20040311
  2. EFFEXOR [Concomitant]
  3. AMBIEN [Concomitant]
  4. PRAZOSIN HCL [Concomitant]
  5. ANTINEOPLASTIC AGENTS [Suspect]
     Indication: B-CELL LYMPHOMA
     Dates: start: 20040225, end: 20040301
  6. PREDNISONE [Suspect]
     Indication: B-CELL LYMPHOMA
     Dates: start: 20040225, end: 20040301

REACTIONS (8)
  - AGRANULOCYTOSIS [None]
  - B-CELL LYMPHOMA [None]
  - CONFUSIONAL STATE [None]
  - COUGH [None]
  - LEUKOPENIA [None]
  - LYMPHADENOPATHY [None]
  - NIGHT SWEATS [None]
  - PYREXIA [None]
